FAERS Safety Report 16038220 (Version 2)
Quarter: 2019Q1

REPORT INFORMATION
  Report Type: Spontaneous
  Country: LB (occurrence: LB)
  Receive Date: 20190305
  Receipt Date: 20190321
  Transmission Date: 20190418
  Serious: Yes (Other)
  Sender: FDA-Public Use
  Company Number: LB-ABBVIE-19S-093-2687536-00

PATIENT
  Weight: 3.5 kg

DRUGS (3)
  1. ULTANE [Suspect]
     Active Substance: SEVOFLURANE
     Dosage: MAC LEVEL: 4%
     Route: 055
  2. ULTANE [Suspect]
     Active Substance: SEVOFLURANE
     Dosage: MAC LEVEL: 6%
     Route: 055
  3. ULTANE [Suspect]
     Active Substance: SEVOFLURANE
     Indication: PRODUCT USED FOR UNKNOWN INDICATION
     Dosage: LENGTH OF ADMINISTRATION: BETWEEN 30 AND 45 MIN.?MAC LEVEL: 8%
     Route: 055

REACTIONS (1)
  - Delayed recovery from anaesthesia [Recovered/Resolved]
